FAERS Safety Report 7505411-3 (Version None)
Quarter: 2011Q2

REPORT INFORMATION
  Report Type: 
  Country: None (occurrence: None)
  Receive Date: 20110526
  Receipt Date: 20110513
  Transmission Date: 20111010
  Serious: Yes (Other)
  Sender: FDA-Public Use
  Company Number: PHHY2010BR82166

PATIENT
  Sex: Male

DRUGS (1)
  1. EXELON [Suspect]
     Dosage: 18MG/10CM2
     Route: 062

REACTIONS (7)
  - LOGORRHOEA [None]
  - VISION BLURRED [None]
  - CONFUSIONAL STATE [None]
  - ARRHYTHMIA [None]
  - COORDINATION ABNORMAL [None]
  - HALLUCINATION [None]
  - ABNORMAL BEHAVIOUR [None]
